FAERS Safety Report 4636700-8 (Version None)
Quarter: 2005Q2

REPORT INFORMATION
  Report Type: 
  Country: None (occurrence: None)
  Receive Date: 20050414
  Receipt Date: 20050401
  Transmission Date: 20051028
  Serious: Yes (Other)
  Sender: FDA-Public Use
  Company Number: 2005053610

PATIENT
  Age: 27 Year
  Sex: Male

DRUGS (1)
  1. VALDECOXIB [Suspect]
     Indication: PAIN
     Dosage: 20 MG (20 MG, 1 D), ORAL
     Route: 048
     Dates: start: 20050311, end: 20050311

REACTIONS (2)
  - ASTHENIA [None]
  - MUSCLE RIGIDITY [None]
